FAERS Safety Report 4373913-7 (Version None)
Quarter: 2004Q1

REPORT INFORMATION
  Report Type: 
  Country: None (occurrence: None)
  Receive Date: 20040305
  Receipt Date: 20040123
  Transmission Date: 20041129
  Serious: Yes (Other)
  Sender: FDA-Public Use
  Company Number: 2004UW01238

PATIENT
  Age: 61 Year
  Sex: Female
  Weight: 62.5964 kg

DRUGS (2)
  1. CRESTOR [Suspect]
     Indication: BLOOD CHOLESTEROL INCREASED
     Dosage: 10 MG PO
     Route: 048
     Dates: start: 20030901, end: 20040101
  2. PREMARIN [Concomitant]

REACTIONS (5)
  - ABDOMINAL PAIN [None]
  - CHEST PAIN [None]
  - HAEMATOCHEZIA [None]
  - NAUSEA [None]
  - PRURITUS [None]
